FAERS Safety Report 5881234-6 (Version None)
Quarter: 2008Q3

REPORT INFORMATION
  Report Type: 
  Country: None (occurrence: None)
  Receive Date: 20080912
  Receipt Date: 20080624
  Transmission Date: 20090109
  Serious: No
  Sender: FDA-Public Use
  Company Number: US-ABBOTT-08P-163-0459454-00

PATIENT
  Sex: Female
  Weight: 48.124 kg

DRUGS (8)
  1. HUMIRA [Suspect]
     Indication: OSTEOARTHRITIS
     Route: 058
     Dates: start: 20080620
  2. METHOTREXATE [Concomitant]
     Indication: OSTEOARTHRITIS
     Route: 050
     Dates: start: 20070601
  3. LEUCOVORIN CALCIUM [Concomitant]
     Indication: SUPPLEMENTATION THERAPY
     Route: 048
     Dates: start: 20060101
  4. HYDROCHLOROTHIAZIDE [Concomitant]
     Indication: HYPERTENSION
     Route: 048
     Dates: start: 20050101
  5. ACETYLSALICYLIC ACID SRT [Concomitant]
     Indication: CARDIAC DISORDER
     Route: 048
  6. PANCREATIN TRIPLE STRENGTH CAP [Concomitant]
     Indication: PANCREATICODUODENECTOMY
     Dosage: 2 WITH EVERY MEAL AND 1 WITH SNACKS SNACKS
     Route: 048
     Dates: start: 20010101
  7. TYLOX [Concomitant]
     Indication: PAIN
     Dosage: 20-30 MILLIGRAMS DAILY - 10 MILLIGRAMS 2-3 TIMES
     Route: 048
     Dates: start: 20010101
  8. FENTYL [Concomitant]
     Indication: PAIN
     Dosage: 50MG PATCH EVERY 48 HOURS
     Route: 023
     Dates: start: 20080101

REACTIONS (4)
  - ANOREXIA [None]
  - ASTHENIA [None]
  - DIZZINESS [None]
  - HYPOVENTILATION [None]
